FAERS Safety Report 10344897 (Version 1)
Quarter: 2014Q3

REPORT INFORMATION
  Report Type: Spontaneous
  Country: US (occurrence: None)
  Receive Date: 20140723
  Receipt Date: 20140723
  Transmission Date: 20150326
  Serious: No
  Sender: FDA-Public Use
  Company Number: CC14-0847

PATIENT
  Age: 92 Year
  Sex: Female
  Weight: 52.16 kg

DRUGS (2)
  1. METRONIDAZOLE VAGINAL GEL [Suspect]
     Active Substance: METRONIDAZOLE
     Indication: VAGINAL DISCHARGE
     Dosage: ONCE QHS
     Dates: start: 20140611, end: 20140611
  2. METRONIDAZOLE VAGINAL GEL [Suspect]
     Active Substance: METRONIDAZOLE
     Indication: VULVOVAGINAL PRURITUS
     Dosage: ONCE QHS
     Dates: start: 20140611, end: 20140611

REACTIONS (8)
  - Irritability [None]
  - Dysgeusia [None]
  - Asthenia [None]
  - Nausea [None]
  - Abdominal pain [None]
  - Constipation [None]
  - Dry mouth [None]
  - Insomnia [None]
